FAERS Safety Report 9276993 (Version 3)
Quarter: 2013Q2

REPORT INFORMATION
  Report Type: Spontaneous
  Country: US (occurrence: None)
  Receive Date: 20130501
  Receipt Date: 20130606
  Transmission Date: 20140414
  Serious: Yes (Other)
  Sender: FDA-Public Use
  Company Number: 2012-002649

PATIENT
  Age: 50 Year
  Sex: Female

DRUGS (40)
  1. ACTONEL (RISEDRONATE SODIUM) TABLET, 35MG [Suspect]
     Route: 048
     Dates: end: 200411
  2. ACTONEL [Suspect]
     Indication: OSTEOPOROSIS
     Route: 048
     Dates: start: 200006
  3. FOSAMAX [Suspect]
     Indication: OSTEOPENIA
     Route: 048
     Dates: start: 200411
  4. FOSAMAX [Suspect]
     Indication: OSTEOPOROSIS
     Route: 048
     Dates: start: 200411
  5. ALENDRONATE [Suspect]
     Route: 048
     Dates: start: 200805, end: 201003
  6. PREMARIN (ESTROGENS CONJUGATED) [Concomitant]
  7. MOBIC (MELOXICAM) [Concomitant]
  8. BEXTRA/01400702/(PARECOXIB SODIUM) [Concomitant]
  9. CELEBREX (CELECOXIB) [Concomitant]
  10. VIOXX (ROFECOXIB) [Concomitant]
  11. ULTRAM (TRAMADOL HYDROCHLORIDE) [Concomitant]
  12. LORTAB/00607101/(HYDROCODONE BITARTRATE, PARACETAMOL) [Concomitant]
  13. ZANAFLEX (TIZANIDINE HYDROCHLORIDE) [Concomitant]
  14. CYCLOBENZAPRINE (CYCLOBENZAPRINE) [Concomitant]
  15. IMITREX/01044801/ (SUMATRIPTAN) [Concomitant]
  16. AMITRIPTYLINE (AMITRIPTYLINE) [Concomitant]
  17. WELLBUTRIN (BUPROPION HYDROCHLORIDE) [Concomitant]
  18. EFFEXOR (VENLAFAXINE HYDROCHLORIDE) [Concomitant]
  19. NEURONTIN (GABAPENTIN) [Concomitant]
  20. DEPAKOTE (VALPROATE SEMISODIUM) [Concomitant]
  21. NEXIUM/01479302/ (ESOMEPRAZOLE MAGNESIUM) [Concomitant]
  22. PREVACID (LANSOPRAZOLE) [Concomitant]
  23. SUCRALFATE (SUCRALFATE) UNKNOWN [Concomitant]
  24. DETROL LA (TOLTERODINE L-TARTRATE) [Concomitant]
  25. ASTELIN /000884002/ (AZELASTINE HYDROCHLORIDE) [Concomitant]
  26. CLARITIN-D (LORATADINE, PSEUDOEPHEDRINE SULFATE) [Concomitant]
  27. FEXOFENADINE [Concomitant]
  28. ALBUTEROL /00139501/SALBUTAMOL) [Concomitant]
  29. FLOVENT (FLUTICASONE PROPIONATE) [Concomitant]
  30. AZMACORT (TRIAMCINOLONE ACETONIDE) [Concomitant]
  31. NASONEX (MOMETASONE FUROATE) [Concomitant]
  32. SINGULAIR [Concomitant]
  33. MULTIVITAMIN/00831701/ (VITAMINS NOS) [Concomitant]
  34. OSCAL/00751519/ (CALCIUM CARBONATE) [Concomitant]
  35. VITAMIN D/00318501/ (COLECALCIFEROL) [Concomitant]
  36. ZANTAC (RANITIDINE HYDROCHLORIDE) [Concomitant]
  37. PERCOCET [Suspect]
  38. XANAX (ALPRAZOLAM) [Concomitant]
  39. ESTRATEST (ESTROGENS ESTERFIED, METHYLTESTOSTERONE) [Concomitant]
  40. SEROQUEL (QUETIAPINE FUMARATE) [Concomitant]

REACTIONS (22)
  - Osteonecrosis [None]
  - Arthralgia [None]
  - Joint swelling [None]
  - Osteonecrosis of jaw [None]
  - Bone disorder [None]
  - Pain [None]
  - Oral pain [None]
  - Abscess [None]
  - Cellulitis [None]
  - Osteonecrosis [None]
  - Osteopenia [None]
  - Device failure [None]
  - Pyelonephritis [None]
  - Radiculitis [None]
  - Groin abscess [None]
  - Spinal osteoarthritis [None]
  - Gastrooesophageal reflux disease [None]
  - Umbilical hernia [None]
  - Ankle fracture [None]
  - Abdominal abscess [None]
  - Gastroduodenitis [None]
  - Chondropathy [None]
